FAERS Safety Report 15294896 (Version 1)
Quarter: 2018Q3

REPORT INFORMATION
  Report Type: Spontaneous
  Country: CA (occurrence: CA)
  Receive Date: 20180820
  Receipt Date: 20180820
  Transmission Date: 20181010
  Serious: Yes (Other)
  Sender: FDA-Public Use
  Company Number: CA-ORION CORPORATION ORION PHARMA-TREX2018-2434

PATIENT
  Age: 48 Year
  Sex: Male

DRUGS (1)
  1. METHOTREXATE (TRADE NAME UNKNOWN) [Suspect]
     Active Substance: METHOTREXATE
     Indication: PRODUCT USED FOR UNKNOWN INDICATION
     Route: 048

REACTIONS (6)
  - Joint swelling [Unknown]
  - Drug dose omission [Unknown]
  - Arthralgia [Unknown]
  - Pain in extremity [Unknown]
  - Limb mass [Unknown]
  - Tendon transfer [Unknown]

NARRATIVE: CASE EVENT DATE: 201805
